FAERS Safety Report 13418450 (Version 1)
Quarter: 2017Q2

REPORT INFORMATION
  Report Type: Report from Study
  Country: None (occurrence: DE)
  Receive Date: 20170408
  Receipt Date: 20170408
  Transmission Date: 20170830
  Serious: Yes (Other)
  Sender: FDA-Public Use
  Company Number: DE-ABBVIE-17P-062-1933371-00

PATIENT
  Sex: Female

DRUGS (1)
  1. HUMIRA [Suspect]
     Active Substance: ADALIMUMAB
     Indication: PRODUCT USED FOR UNKNOWN INDICATION
     Dosage: UNKNOWN
     Route: 058

REACTIONS (4)
  - Cough [Unknown]
  - Fear [Unknown]
  - Bronchial disorder [Unknown]
  - Bronchiolitis [Unknown]

NARRATIVE: CASE EVENT DATE: 2016
